FAERS Safety Report 14843106 (Version 3)
Quarter: 2018Q2

REPORT INFORMATION
  Report Type: Spontaneous
  Country: FI (occurrence: FI)
  Receive Date: 20180503
  Receipt Date: 20180614
  Transmission Date: 20180711
  Serious: Yes (Hospitalization, Other)
  Sender: FDA-Public Use
  Company Number: PHHY2018FI073126

PATIENT
  Age: 68 Year
  Sex: Male

DRUGS (20)
  1. RISPERIDONE. [Suspect]
     Active Substance: RISPERIDONE
     Indication: HALLUCINATION, VISUAL
     Dosage: 1 MG, QD (IN THE EVENINGS)
     Route: 065
     Dates: start: 20171231
  2. RISPERIDONE. [Suspect]
     Active Substance: RISPERIDONE
     Dosage: 2 MG, UNK
     Route: 065
     Dates: start: 20180102
  3. SERENASE (HALOPERIDOL) [Suspect]
     Active Substance: HALOPERIDOL
     Indication: PRODUCT USED FOR UNKNOWN INDICATION
     Dosage: 5 MG, UNK
     Route: 065
     Dates: start: 20180126
  4. OLANZAPINE. [Suspect]
     Active Substance: OLANZAPINE
     Dosage: 7.5 MG, UNK
     Route: 065
     Dates: start: 20180131
  5. RISPERIDONE. [Suspect]
     Active Substance: RISPERIDONE
     Dosage: 4 MG, BID (1+0+3 MG)
     Route: 065
     Dates: start: 20180114
  6. ATIVAN [Suspect]
     Active Substance: LORAZEPAM
     Dosage: 3 MG, TID
     Route: 065
     Dates: start: 20180107
  7. SERENASE (HALOPERIDOL) [Suspect]
     Active Substance: HALOPERIDOL
     Dosage: UNK (2 X SERENASE 2,5 MG)
     Route: 065
     Dates: start: 20180129
  8. ZYPREXA [Suspect]
     Active Substance: OLANZAPINE
     Indication: PRODUCT USED FOR UNKNOWN INDICATION
     Dosage: 15 MG, UNK
     Route: 065
  9. OLANZAPINE. [Suspect]
     Active Substance: OLANZAPINE
     Dosage: UNK
     Route: 065
     Dates: start: 20180203
  10. ATIVAN [Suspect]
     Active Substance: LORAZEPAM
     Indication: PRODUCT USED FOR UNKNOWN INDICATION
     Dosage: 2 MG, TID (0,5+0,5+1)
     Route: 065
     Dates: start: 20180104
  11. OLANZAPINE. [Suspect]
     Active Substance: OLANZAPINE
     Dosage: 2 MG, TID
     Route: 065
     Dates: start: 20180201
  12. RISPERIDONE. [Suspect]
     Active Substance: RISPERIDONE
     Dosage: 3 MG, BID (1+0+2 MG)
     Route: 065
     Dates: start: 20180107
  13. RISPERIDONE. [Suspect]
     Active Substance: RISPERIDONE
     Dosage: 3 MG, QD
     Route: 065
     Dates: start: 20180115
  14. DIAPAM (DIAZEPAM) [Suspect]
     Active Substance: DIAZEPAM
     Indication: PRODUCT USED FOR UNKNOWN INDICATION
     Dosage: 10 MG, TID
     Route: 065
  15. RISPERIDONE. [Suspect]
     Active Substance: RISPERIDONE
     Dosage: 2 MG, QD (0+0+2)
     Route: 065
     Dates: start: 20180124
  16. ATIVAN [Suspect]
     Active Substance: LORAZEPAM
     Dosage: 2 MG, UNK (RESTLESS, DELUSIONAL)
     Route: 065
     Dates: start: 20180129
  17. DIAPAM (DIAZEPAM) [Suspect]
     Active Substance: DIAZEPAM
     Dosage: 15 MG, QD
     Route: 065
  18. OLANZAPINE. [Suspect]
     Active Substance: OLANZAPINE
     Indication: HALLUCINATION, VISUAL
     Dosage: 10 MG, QD
     Route: 065
     Dates: start: 20180124
  19. RISPERIDONE. [Suspect]
     Active Substance: RISPERIDONE
     Dosage: 1 MG, QD
     Route: 065
     Dates: start: 20180127, end: 20180129
  20. ATIVAN [Suspect]
     Active Substance: LORAZEPAM
     Dosage: 4 MG, UNK
     Route: 065
     Dates: start: 20180126

REACTIONS (6)
  - Parkinson^s disease [Recovering/Resolving]
  - Vascular dementia [Recovering/Resolving]
  - Balance disorder [Recovering/Resolving]
  - Dementia with Lewy bodies [Recovering/Resolving]
  - Hallucination [Recovering/Resolving]
  - Parkinsonism [None]
